FAERS Safety Report 7587388-8 (Version None)
Quarter: 2011Q3

REPORT INFORMATION
  Report Type: 
  Country: None (occurrence: None)
  Receive Date: 20110702
  Receipt Date: 20110622
  Transmission Date: 20111222
  Serious: Yes (Hospitalization, Other)
  Sender: FDA-Public Use
  Company Number: US-ASTRAZENECA-2011SE15871

PATIENT
  Age: 57 Year
  Sex: Female

DRUGS (7)
  1. XANAX [Concomitant]
  2. MELOXICAM [Concomitant]
  3. XANAX [Concomitant]
  4. ARIMIDEX [Suspect]
     Route: 048
  5. RESTORIL [Concomitant]
  6. AMITRIPTYLINE HCL [Concomitant]
  7. BYSTOLIC [Concomitant]

REACTIONS (5)
  - VENOUS INSUFFICIENCY [None]
  - LETHARGY [None]
  - VENA CAVA FILTER INSERTION [None]
  - OEDEMA PERIPHERAL [None]
  - NEOPLASM MALIGNANT [None]
